FAERS Safety Report 6388376-X (Version None)
Quarter: 2009Q4

REPORT INFORMATION
  Report Type: 
  Country: None (occurrence: None)
  Receive Date: 20091001
  Receipt Date: 20091001
  Transmission Date: 20100525
  Serious: Yes (Other)
  Sender: FDA-Public Use
  Company Number: None

PATIENT
  Sex: Female
  Weight: 72.7 kg

DRUGS (2)
  1. WELCHOL [Suspect]
     Indication: BLOOD CHOLESTEROL INCREASED
     Dosage: 675MG 3 PILLS TWICE A DAY TWICE A DAY 3 PILL 6 - 9 MONTHS
  2. WELCHOL [Suspect]
     Indication: BLOOD GLUCOSE ABNORMAL
     Dosage: 675MG 3 PILLS TWICE A DAY TWICE A DAY 3 PILL 6 - 9 MONTHS

REACTIONS (2)
  - GAIT DISTURBANCE [None]
  - OEDEMA PERIPHERAL [None]
